FAERS Safety Report 9637583 (Version 1)
Quarter: 2013Q4

REPORT INFORMATION
  Report Type: Spontaneous
  Country: US (occurrence: US)
  Receive Date: 20131022
  Receipt Date: 20131022
  Transmission Date: 20140711
  Serious: No
  Sender: FDA-Public Use
  Company Number: US-009507513-1310USA008856

PATIENT
  Age: 24 Year
  Sex: Female
  Weight: 54.42 kg

DRUGS (3)
  1. IMPLANON [Suspect]
     Indication: CONTRACEPTION
     Dosage: UNK
     Route: 059
     Dates: start: 20120524
  2. VIIBRYD [Concomitant]
     Dosage: 40 MG, QD
  3. XANAX [Concomitant]
     Dosage: UNK, PRN

REACTIONS (4)
  - Menorrhagia [Unknown]
  - Fatigue [Unknown]
  - Asthenia [Unknown]
  - Hypomenorrhoea [Unknown]
